FAERS Safety Report 6997239-8 (Version None)
Quarter: 2010Q3

REPORT INFORMATION
  Report Type: 
  Country: None (occurrence: None)
  Receive Date: 20100918
  Receipt Date: 20090923
  Transmission Date: 20110219
  Serious: No
  Sender: FDA-Public Use
  Company Number: US-WYE-H11184809

PATIENT
  Sex: Male
  Weight: 95.34 kg

DRUGS (1)
  1. PRISTIQ [Suspect]

REACTIONS (3)
  - HEADACHE [None]
  - NEGATIVE THOUGHTS [None]
  - THINKING ABNORMAL [None]
